FAERS Safety Report 17038233 (Version 2)
Quarter: 2020Q2

REPORT INFORMATION
  Report Type: Spontaneous
  Country: US (occurrence: US)
  Receive Date: 20191115
  Receipt Date: 20200402
  Transmission Date: 20200713
  Serious: No
  Sender: FDA-Public Use
  Company Number: US-JNJFOC-20191000295

PATIENT
  Sex: Male

DRUGS (5)
  1. LISINOPRIL. [Concomitant]
     Active Substance: LISINOPRIL
     Indication: PROSTATIC SPECIFIC ANTIGEN INCREASED
  2. LOSARTAN. [Concomitant]
     Active Substance: LOSARTAN
     Indication: PROSTATIC SPECIFIC ANTIGEN INCREASED
  3. ERLEADA [Suspect]
     Active Substance: APALUTAMIDE
     Route: 065
  4. ERLEADA [Suspect]
     Active Substance: APALUTAMIDE
     Indication: PRODUCT USED FOR UNKNOWN INDICATION
     Route: 048
  5. METOPROLOL. [Concomitant]
     Active Substance: METOPROLOL
     Indication: PROSTATIC SPECIFIC ANTIGEN INCREASED

REACTIONS (3)
  - Decreased appetite [Recovering/Resolving]
  - Incorrect dose administered [Unknown]
  - Fatigue [Recovering/Resolving]
